FAERS Safety Report 14935233 (Version 3)
Quarter: 2018Q3

REPORT INFORMATION
  Report Type: Spontaneous
  Country: US (occurrence: US)
  Receive Date: 20180524
  Receipt Date: 20180703
  Transmission Date: 20181010
  Serious: Yes (Other)
  Sender: FDA-Public Use
  Company Number: PHEH2018US019736

PATIENT
  Sex: Female

DRUGS (2)
  1. LETROZOLE. [Suspect]
     Active Substance: LETROZOLE
     Indication: BREAST CANCER
     Dosage: UNK UNK, QD (ONCE DAILY)
     Route: 048
  2. KISQALI [Suspect]
     Active Substance: RIBOCICLIB
     Indication: BREAST CANCER
     Dosage: 600 MG, QD (ONCE DAILY)
     Route: 048
     Dates: start: 201801, end: 20180608

REACTIONS (6)
  - Swelling face [Unknown]
  - Eye swelling [Unknown]
  - Erythema [Unknown]
  - Rash generalised [Recovered/Resolved]
  - Rash vesicular [Unknown]
  - Pruritus [Unknown]

NARRATIVE: CASE EVENT DATE: 20180318
